FAERS Safety Report 11517809 (Version 1)
Quarter: 2015Q3

REPORT INFORMATION
  Report Type: Spontaneous
  Country: US (occurrence: US)
  Receive Date: 20150917
  Receipt Date: 20150917
  Transmission Date: 20151125
  Serious: Yes (Death)
  Sender: FDA-Public Use
  Company Number: US-PFIZER INC-2015309509

PATIENT
  Age: 64 Year
  Sex: Male
  Weight: 73.3 kg

DRUGS (12)
  1. RANEXA [Concomitant]
     Active Substance: RANOLAZINE
  2. IBUPROFEN. [Concomitant]
     Active Substance: IBUPROFEN
  3. FUROSEMIDE. [Concomitant]
     Active Substance: FUROSEMIDE
  4. PRAVACHOL [Concomitant]
     Active Substance: PRAVASTATIN SODIUM
  5. METHOTREXATE [Concomitant]
     Active Substance: METHOTREXATE
  6. ACETYLSALICYLIC ACID [Concomitant]
     Active Substance: ASPIRIN
  7. LOPRESSOR [Concomitant]
     Active Substance: METOPROLOL TARTRATE
  8. XELJANZ [Suspect]
     Active Substance: TOFACITINIB CITRATE
     Indication: RHEUMATOID ARTHRITIS
     Dosage: UNK
     Dates: start: 201503
  9. FOLIC ACID. [Concomitant]
     Active Substance: FOLIC ACID
  10. ENDURE [Concomitant]
  11. WARFARIN SODIUM. [Concomitant]
     Active Substance: WARFARIN SODIUM
  12. AMBIEN [Concomitant]
     Active Substance: ZOLPIDEM TARTRATE

REACTIONS (1)
  - Histoplasmosis [Fatal]

NARRATIVE: CASE EVENT DATE: 201507
